FAERS Safety Report 25204636 (Version 2)
Quarter: 2025Q2

REPORT INFORMATION
  Report Type: Spontaneous
  Country: DE (occurrence: DE)
  Receive Date: 20250416
  Receipt Date: 20250422
  Transmission Date: 20250717
  Serious: Yes (Other)
  Sender: ELI LILLY AND COMPANY
  Company Number: DE-ELI_LILLY_AND_COMPANY-DE202504005573

PATIENT
  Age: 72 Year
  Sex: Female

DRUGS (3)
  1. TERIPARATIDE [Suspect]
     Active Substance: TERIPARATIDE
     Indication: Osteoporosis
     Route: 065
  2. ENBREL [Concomitant]
     Active Substance: ETANERCEPT
     Indication: Product used for unknown indication
     Route: 065
  3. ACTONEL [Concomitant]
     Active Substance: RISEDRONATE SODIUM
     Indication: Product used for unknown indication
     Route: 065

REACTIONS (8)
  - Cardiovascular insufficiency [Unknown]
  - Urinary incontinence [Unknown]
  - Micturition urgency [Unknown]
  - Haemorrhoids [Unknown]
  - Diaphragmatic hernia [Unknown]
  - Fatigue [Unknown]
  - Dizziness [Unknown]
  - Fractured sacrum [Unknown]
